FAERS Safety Report 4652687-6 (Version None)
Quarter: 2005Q2

REPORT INFORMATION
  Report Type: 
  Country: None (occurrence: None)
  Receive Date: 20050502
  Receipt Date: 20050419
  Transmission Date: 20051028
  Serious: Yes (Hospitalization)
  Sender: FDA-Public Use
  Company Number: 2005063293

PATIENT
  Age: 36 Year
  Sex: Male

DRUGS (2)
  1. PIROXICAM [Suspect]
     Indication: BACK PAIN
     Dosage: (40 MG, 1 IN 1 D), ORAL
     Route: 048
     Dates: start: 20050403, end: 20050410
  2. KETOPROFEN LYSINE (KETOPROFEN LYSINE) [Concomitant]

REACTIONS (4)
  - ERYTHEMA NODOSUM [None]
  - LABORATORY TEST ABNORMAL [None]
  - PAIN [None]
  - RED BLOOD CELL SEDIMENTATION RATE INCREASED [None]
